FAERS Safety Report 4686811-6 (Version None)
Quarter: 2005Q2

REPORT INFORMATION
  Report Type: 
  Country: None (occurrence: None)
  Receive Date: 20050608
  Receipt Date: 20050527
  Transmission Date: 20051028
  Serious: Yes (Hospitalization)
  Sender: FDA-Public Use
  Company Number: 2005JP000964

PATIENT
  Age: 10 Year
  Sex: Male
  Weight: 30 kg

DRUGS (1)
  1. EPOCELIN(CEFTIZOXIME) FORMULATION UNKNOWN [Suspect]
     Indication: PNEUMONIA
     Dates: start: 20050415, end: 20050416

REACTIONS (6)
  - CHEILITIS [None]
  - HERPES VIRUS INFECTION [None]
  - MYCOPLASMA INFECTION [None]
  - OEDEMA MOUTH [None]
  - STOMATITIS [None]
  - SWELLING FACE [None]
